FAERS Safety Report 8605498-0 (Version None)
Quarter: 2012Q3

REPORT INFORMATION
  Report Type: 
  Country: None (occurrence: None)
  Receive Date: 20120820
  Receipt Date: 20120817
  Transmission Date: 20120928
  Serious: Yes (Death)
  Sender: FDA-Public Use
  Company Number: PHHY2012BR056761

PATIENT
  Sex: Male

DRUGS (1)
  1. AMLODOPINE BESYLATE AND VALSARTAN [Suspect]
     Dosage: 320/5 MG, EVERY DAY

REACTIONS (6)
  - NECK PAIN [None]
  - HYPERTENSION [None]
  - DEATH [None]
  - MALAISE [None]
  - HEADACHE [None]
  - NERVOUSNESS [None]
